FAERS Safety Report 7569621-1 (Version None)
Quarter: 2011Q2

REPORT INFORMATION
  Report Type: 
  Country: None (occurrence: None)
  Receive Date: 20110617
  Receipt Date: 20110607
  Transmission Date: 20111010
  Serious: Yes (Hospitalization)
  Sender: FDA-Public Use
  Company Number: 2011SP026306

PATIENT
  Age: 75 Year
  Sex: Female

DRUGS (3)
  1. PEG-INTRON [Suspect]
     Indication: HEPATITIS C
     Dosage: 80 MCG;QW;SC
     Route: 058
     Dates: start: 20100928, end: 20110118
  2. REBETOL [Suspect]
     Indication: HEPATITIS C
     Dosage: 400 MG;BID;PO
     Route: 048
     Dates: start: 20100928, end: 20110118
  3. METOPROLOL TARTRATE [Concomitant]

REACTIONS (10)
  - CONFUSIONAL STATE [None]
  - NEUTROPHIL COUNT INCREASED [None]
  - INFLAMMATION [None]
  - HYPERPYREXIA [None]
  - CHILLS [None]
  - ASTHENIA [None]
  - PANCYTOPENIA [None]
  - SEPSIS [None]
  - PYELONEPHRITIS [None]
  - ESCHERICHIA INFECTION [None]
